FAERS Safety Report 19987506 (Version 1)
Quarter: 2021Q4

REPORT INFORMATION
  Report Type: Spontaneous
  Country: RU (occurrence: RU)
  Receive Date: 20211022
  Receipt Date: 20211022
  Transmission Date: 20220303
  Serious: Yes (Other)
  Sender: FDA-Public Use
  Company Number: RU-MERCK HEALTHCARE KGAA-9273623

PATIENT
  Age: 55 Year

DRUGS (1)
  1. AVELUMAB [Suspect]
     Active Substance: AVELUMAB
     Indication: Transitional cell carcinoma
     Route: 042

REACTIONS (2)
  - Ureteric obstruction [Unknown]
  - Disease progression [Unknown]
